FAERS Safety Report 12882476 (Version 1)
Quarter: 2016Q4

REPORT INFORMATION
  Report Type: Spontaneous
  Country: PL (occurrence: PL)
  Receive Date: 20161025
  Receipt Date: 20161025
  Transmission Date: 20170207
  Serious: Yes (Other)
  Sender: FDA-Public Use
  Company Number: PL-JNJFOC-20161017201

PATIENT

DRUGS (3)
  1. INFLIXIMAB, RECOMBINANT [Suspect]
     Active Substance: INFLIXIMAB
     Indication: CROHN^S DISEASE
     Route: 042
  2. AZATHIOPRINE. [Concomitant]
     Active Substance: AZATHIOPRINE
     Route: 065
  3. MERCAPTOPURINE. [Concomitant]
     Active Substance: MERCAPTOPURINE
     Route: 065

REACTIONS (12)
  - Hepatic function abnormal [Unknown]
  - Viral infection [Unknown]
  - Leukopenia [Unknown]
  - Drug ineffective [Unknown]
  - Drug effect incomplete [Unknown]
  - Fungal infection [Unknown]
  - Surgery [Unknown]
  - Tuberculosis [Unknown]
  - Thrombocytopenia [Unknown]
  - Bacterial infection [Unknown]
  - Anaemia [Unknown]
  - Crohn^s disease [Unknown]
